FAERS Safety Report 4561811-5 (Version None)
Quarter: 2005Q1

REPORT INFORMATION
  Report Type: 
  Country: None (occurrence: None)
  Receive Date: 20050125
  Receipt Date: 20050112
  Transmission Date: 20050727
  Serious: Yes (Other)
  Sender: FDA-Public Use
  Company Number: HQWYE217317JUL04

PATIENT
  Age: 58 Year
  Sex: Female
  Weight: 99.88 kg

DRUGS (4)
  1. PREMPRO [Suspect]
     Indication: HORMONE REPLACEMENT THERAPY
     Dosage: 0.625 MG/2.5 MG ORAL
     Route: 048
     Dates: start: 19960301, end: 19970101
  2. MEDROXYPROGESTERONE [Suspect]
     Dosage: 2.5 MG ORAL
     Route: 048
     Dates: start: 19951101, end: 19960201
  3. PREMARIN [Suspect]
     Dosage: 0.625 MG, ORAL
     Route: 048
     Dates: start: 19930101, end: 19951101
  4. PROVERA [Suspect]
     Dosage: 2.5 MG ORAL
     Route: 048
     Dates: start: 19930101, end: 19951201

REACTIONS (3)
  - BREAST CANCER METASTATIC [None]
  - DEPRESSION [None]
  - METASTASES TO LYMPH NODES [None]
